FAERS Safety Report 8799548 (Version 2)
Quarter: 2012Q4

REPORT INFORMATION
  Report Type: 
  Country: US (occurrence: US)
  Receive Date: 20120919
  Receipt Date: 20121212
  Transmission Date: 20130627
  Serious: Yes (Other)
  Sender: FDA-Public Use
  Company Number: US-PFIZER INC-2012051394

PATIENT
  Age: 53 Year
  Sex: Female

DRUGS (6)
  1. CHANTIX [Suspect]
     Indication: SMOKING CESSATION THERAPY
     Dosage: Starter pack
     Dates: start: 20090303, end: 2009
  2. TRIAZOLAM [Concomitant]
     Indication: SLEEP DISORDER
     Dosage: UNK
     Dates: start: 2000
  3. HUMIRA [Concomitant]
     Indication: PSORIATIC ARTHRITIS
     Dosage: UNK
     Dates: start: 2002
  4. MELOXICAM [Concomitant]
     Indication: PSORIATIC ARTHRITIS
     Dosage: UNK
     Dates: start: 2002
  5. METFORMIN [Concomitant]
     Indication: DIABETES
     Dosage: UNK
  6. CYMBALTA [Concomitant]
     Indication: DEPRESSION
     Dosage: UNK
     Dates: start: 2007, end: 2012

REACTIONS (2)
  - Suicidal ideation [Not Recovered/Not Resolved]
  - Depression [Not Recovered/Not Resolved]
